FAERS Safety Report 6400122-X (Version None)
Quarter: 2009Q4

REPORT INFORMATION
  Report Type: 
  Country: None (occurrence: None)
  Receive Date: 20091014
  Receipt Date: 20091012
  Transmission Date: 20100525
  Serious: Yes (Hospitalization)
  Sender: FDA-Public Use
  Company Number: US-B.I. PHARMACEUTICALS,INC./RIDGEFIELD-2009-BP-11869BP

PATIENT
  Sex: Female

DRUGS (7)
  1. COMBIVENT [Suspect]
     Indication: ASTHMA
     Dosage: 8 PUF
     Route: 055
  2. SINGULAIR [Concomitant]
     Indication: ASTHMA
  3. DEMODEX [Concomitant]
     Indication: CARDIAC FAILURE CONGESTIVE
  4. ALDACTONE [Concomitant]
     Indication: CARDIAC FAILURE CONGESTIVE
  5. DIOVAN [Concomitant]
     Indication: HYPERTENSION
  6. PROZAC [Concomitant]
     Indication: DEPRESSION
  7. XOPENEX [Concomitant]
     Indication: ASTHMA

REACTIONS (3)
  - DYSPNOEA [None]
  - HEART RATE IRREGULAR [None]
  - THYROID NEOPLASM [None]
